FAERS Safety Report 5471252-4 (Version None)
Quarter: 2007Q3

REPORT INFORMATION
  Report Type: 
  Country: None (occurrence: None)
  Receive Date: 20070928
  Receipt Date: 20070920
  Transmission Date: 20080115
  Serious: Yes (Hospitalization)
  Sender: FDA-Public Use
  Company Number: HQWYE267321SEP07

PATIENT
  Sex: Male
  Weight: 89 kg

DRUGS (4)
  1. TEMSIROLIMUS [Suspect]
     Route: 042
     Dates: start: 20070705
  2. SUCRALFATE [Concomitant]
     Indication: MUCOSAL INFLAMMATION
     Dosage: UNKNOWN
     Dates: start: 20070712
  3. CETIRIZINE HCL [Concomitant]
     Indication: PRURITUS
     Dosage: UNKNOWN
     Dates: start: 20070830
  4. LEVOMEPROMAZINE [Concomitant]
     Indication: NAUSEA
     Dosage: UNKNOWN
     Dates: start: 20070705

REACTIONS (1)
  - LETHARGY [None]
